FAERS Safety Report 6808307-5 (Version None)
Quarter: 2010Q2

REPORT INFORMATION
  Report Type: 
  Country: None (occurrence: None)
  Receive Date: 20100629
  Receipt Date: 20090609
  Transmission Date: 20101027
  Serious: No
  Sender: FDA-Public Use
  Company Number: US-PFIZER INC-2009203033

PATIENT
  Sex: Male
  Weight: 95.254 kg

DRUGS (3)
  1. ARTHROTEC [Suspect]
     Indication: OSTEOARTHRITIS
     Dosage: 75 MG, 2X/DAY
  2. ATENOLOL [Concomitant]
  3. LIPITOR [Concomitant]

REACTIONS (1)
  - NEUROPATHY PERIPHERAL [None]
